FAERS Safety Report 8299779 (Version 4)
Quarter: 2013Q2

REPORT INFORMATION
  Report Type: Spontaneous
  Country: US (occurrence: US)
  Receive Date: 20111219
  Receipt Date: 20130419
  Transmission Date: 20140414
  Serious: Yes (Other)
  Sender: FDA-Public Use
  Company Number: US-ROCHE-1022822

PATIENT
  Age: 43 Year
  Sex: Female
  Weight: 107.14 kg

DRUGS (2)
  1. ACCUTANE [Suspect]
     Indication: ACNE CYSTIC
     Route: 048
     Dates: start: 20000926
  2. ACCUTANE [Suspect]
     Route: 065
     Dates: start: 200201, end: 200207

REACTIONS (6)
  - Diverticulitis [Unknown]
  - Abscess intestinal [Unknown]
  - Large intestine polyp [Unknown]
  - Emotional distress [Unknown]
  - Epistaxis [Unknown]
  - Xerosis [Unknown]
